FAERS Safety Report 13163724 (Version 1)
Quarter: 2017Q1

REPORT INFORMATION
  Report Type: Spontaneous
  Country: BR (occurrence: BR)
  Receive Date: 20170130
  Receipt Date: 20170130
  Transmission Date: 20170428
  Serious: Yes (Hospitalization, Other)
  Sender: FDA-Public Use
  Company Number: PHHY2017BR011276

PATIENT
  Age: 64 Year
  Sex: Female

DRUGS (3)
  1. SANDOSTATIN LAR DEPOT [Suspect]
     Active Substance: OCTREOTIDE ACETATE
     Indication: NEUROENDOCRINE TUMOUR
     Dosage: 30 MG, TIW (EVERY 3 WEEKS)
     Route: 065
  2. SANDOSTATIN LAR DEPOT [Suspect]
     Active Substance: OCTREOTIDE ACETATE
     Indication: CARCINOID SYNDROME
     Dosage: 30 MG, QMO (EVERY 28 DAYS)
     Route: 065
     Dates: start: 201308
  3. AFINITOR [Suspect]
     Active Substance: EVEROLIMUS
     Indication: NEUROENDOCRINE TUMOUR
     Dosage: 10 MG, QD
     Route: 048

REACTIONS (13)
  - Blood chromogranin A increased [Unknown]
  - Inappropriate schedule of drug administration [Unknown]
  - Necrosis [Unknown]
  - 5-hydroxyindolacetic acid increased [Unknown]
  - Gastrointestinal wall thickening [Unknown]
  - Gastric mucosal lesion [Unknown]
  - Flushing [Unknown]
  - Hyperglycaemia [Recovering/Resolving]
  - Abdominal pain upper [Unknown]
  - Cholecystitis acute [Unknown]
  - Malignant neoplasm progression [Unknown]
  - Leukocytosis [Unknown]
  - Stomatitis [Unknown]

NARRATIVE: CASE EVENT DATE: 201309
